FAERS Safety Report 4561264-7 (Version None)
Quarter: 2005Q1

REPORT INFORMATION
  Report Type: 
  Country: None (occurrence: None)
  Receive Date: 20050121
  Receipt Date: 20050111
  Transmission Date: 20050727
  Serious: Yes (Hospitalization)
  Sender: FDA-Public Use
  Company Number: 2005PK00097

PATIENT
  Age: 71 Year
  Sex: Female
  Weight: 70 kg

DRUGS (14)
  1. GEFITINIB [Suspect]
     Indication: NON-SMALL CELL LUNG CANCER
     Dosage: 250 MG DAILY PO
     Route: 048
     Dates: start: 20041201
  2. DELIX [Concomitant]
  3. NEURONTIN [Concomitant]
  4. REMERGIL [Concomitant]
  5. LORAZEPAM [Concomitant]
  6. L-THYROXIN [Concomitant]
  7. METOCLOPRAMIDE HYDROCHLORIDE [Concomitant]
  8. BERODUAL [Concomitant]
  9. NOVALGIN [Concomitant]
  10. VIANI [Concomitant]
  11. PANTOZOL [Concomitant]
  12. ZOLDEM [Concomitant]
  13. SULTANOL [Concomitant]
  14. ATROVENT [Concomitant]

REACTIONS (6)
  - DYSPNOEA [None]
  - LUNG INFECTION [None]
  - SCAB [None]
  - STAPHYLOCOCCAL INFECTION [None]
  - TRACHEAL DISORDER [None]
  - TRACHEOBRONCHITIS [None]
